FAERS Safety Report 7797061-9 (Version None)
Quarter: 2011Q4

REPORT INFORMATION
  Report Type: 
  Country: None (occurrence: None)
  Receive Date: 20111005
  Receipt Date: 20110929
  Transmission Date: 20120403
  Serious: Yes (Death)
  Sender: FDA-Public Use
  Company Number: US-SANOFI-AVENTIS-2011SA064177

PATIENT
  Sex: Male

DRUGS (2)
  1. JEVTANA KIT [Suspect]
     Indication: PROSTATE CANCER
     Dosage: DOSE 50 (UNITS NOT SPECIFIED)
     Route: 041
     Dates: start: 20100809, end: 20100809
  2. JEVTANA KIT [Suspect]
     Dosage: DOSE 50 (UNITS NOT SPECIFIED)
     Route: 041
     Dates: start: 20100908, end: 20100908

REACTIONS (1)
  - DEATH [None]
